FAERS Safety Report 7414847-0 (Version None)
Quarter: 2011Q2

REPORT INFORMATION
  Report Type: 
  Country: None (occurrence: None)
  Receive Date: 20110414
  Receipt Date: 20110407
  Transmission Date: 20111010
  Serious: Yes (Death, Hospitalization)
  Sender: FDA-Public Use
  Company Number: US-SANOFI-AVENTIS-2011SA022168

PATIENT
  Sex: Male

DRUGS (9)
  1. ZAROXOLYN [Concomitant]
  2. PREDNISONE [Concomitant]
  3. DEXAMETHASONE [Concomitant]
     Indication: PREMEDICATION
  4. JEVTANA KIT [Suspect]
     Indication: PROSTATE CANCER METASTATIC
     Route: 041
     Dates: start: 20110106, end: 20110106
  5. METOPROLOL TARTRATE [Concomitant]
  6. LASIX [Concomitant]
  7. POTASSIUM [Concomitant]
  8. SPIRIVA [Concomitant]
  9. COUMADIN [Concomitant]

REACTIONS (1)
  - CARDIAC TAMPONADE [None]
